FAERS Safety Report 6479748-3 (Version None)
Quarter: 2009Q4

REPORT INFORMATION
  Report Type: 
  Country: None (occurrence: None)
  Receive Date: 20091208
  Receipt Date: 20091126
  Transmission Date: 20100525
  Serious: Yes (Life-Threatening, Hospitalization, Other)
  Sender: FDA-Public Use
  Company Number: PHHY2009CZ51121

PATIENT
  Age: 47 Year
  Sex: Male

DRUGS (3)
  1. LEPONEX [Suspect]
     Indication: SCHIZOPHRENIA
  2. OLANZAPINE [Concomitant]
  3. HALOPERIDOL DECANOATE [Concomitant]
     Dosage: 2 VIALS EVERY 14 DAYS
     Route: 030

REACTIONS (19)
  - ANXIETY [None]
  - BLOOD UREA DECREASED [None]
  - DELUSION [None]
  - FATIGUE [None]
  - FEELING ABNORMAL [None]
  - HAEMOGLOBIN DECREASED [None]
  - HYPOKALAEMIA [None]
  - HYPOPHAGIA [None]
  - LEUKOPENIA [None]
  - NEUTROPHIL COUNT DECREASED [None]
  - PARANOIA [None]
  - RED BLOOD CELL COUNT DECREASED [None]
  - SCHIZOPHRENIA, DISORGANISED TYPE [None]
  - SCHIZOPHRENIA, PARANOID TYPE [None]
  - STRESS [None]
  - TREATMENT NONCOMPLIANCE [None]
  - URINARY TRACT INFECTION [None]
  - URINE KETONE BODY PRESENT [None]
  - UROBILIN URINE PRESENT [None]
